FAERS Safety Report 21486387 (Version 1)
Quarter: 2022Q4

REPORT INFORMATION
  Report Type: Spontaneous
  Country: US (occurrence: US)
  Receive Date: 20221020
  Receipt Date: 20221020
  Transmission Date: 20230112
  Serious: Yes (Other)
  Sender: FDA-Public Use
  Company Number: US-PFIZER INC-202201239708

PATIENT
  Age: 51 Year
  Sex: Female

DRUGS (3)
  1. PAXLOVID [Suspect]
     Active Substance: NIRMATRELVIR\RITONAVIR
     Indication: COVID-19 treatment
     Dosage: UNK
     Dates: start: 20221015, end: 20221016
  2. LISINOPRIL [Concomitant]
     Active Substance: LISINOPRIL
     Dosage: UNK
     Dates: start: 20210917
  3. MUCINEX [Concomitant]
     Active Substance: GUAIFENESIN
     Dosage: UNK
     Dates: start: 20221013

REACTIONS (1)
  - Heart rate decreased [Recovering/Resolving]

NARRATIVE: CASE EVENT DATE: 20221016
